FAERS Safety Report 6540410-X (Version None)
Quarter: 2010Q1

REPORT INFORMATION
  Report Type: 
  Country: None (occurrence: None)
  Receive Date: 20100113
  Receipt Date: 20100106
  Transmission Date: 20100710
  Serious: Yes (Other)
  Sender: FDA-Public Use
  Company Number: WWISSUE-385

PATIENT
  Sex: Female

DRUGS (1)
  1. COLCHICINE TABLETS, 0.6 MG/WEST-WARD [Suspect]
     Dates: start: 20091021, end: 20091217

REACTIONS (4)
  - BLOOD PRESSURE INCREASED [None]
  - MIGRAINE [None]
  - NAUSEA [None]
  - PHOTOPHOBIA [None]
